FAERS Safety Report 7073015-5 (Version None)
Quarter: 2010Q4

REPORT INFORMATION
  Report Type: 
  Country: None (occurrence: None)
  Receive Date: 20101029
  Receipt Date: 20100716
  Transmission Date: 20110411
  Serious: No
  Sender: FDA-Public Use
  Company Number: A0854516A

PATIENT
  Age: 51 Year
  Sex: Female

DRUGS (7)
  1. ADVAIR DISKUS 100/50 [Suspect]
     Indication: CHRONIC OBSTRUCTIVE PULMONARY DISEASE
     Dosage: 250MCG TWICE PER DAY
     Route: 055
     Dates: start: 20080101, end: 20100208
  2. CHEMOTHERAPY [Suspect]
  3. RADIATION [Suspect]
  4. PROAIR HFA [Concomitant]
     Dates: start: 20081001
  5. SPIRIVA [Concomitant]
     Dates: start: 20080101
  6. OXYCONTIN [Concomitant]
     Dates: start: 20091201
  7. ALBUTEROL [Concomitant]
     Dates: start: 20080101, end: 20081001

REACTIONS (2)
  - CANDIDIASIS [None]
  - PHARYNGEAL ULCERATION [None]
